FAERS Safety Report 16608785 (Version 1)
Quarter: 2019Q3

REPORT INFORMATION
  Report Type: Spontaneous
  Country: US (occurrence: US)
  Receive Date: 20190606
  Receipt Date: 20190606
  Transmission Date: 20191004
  Serious: Yes (Death)
  Sender: FDA-Public Use
  Company Number: None

PATIENT
  Age: 71 Year
  Sex: Female

DRUGS (3)
  1. ESBRIET [Suspect]
     Active Substance: PIRFENIDONE
     Dosage: ?          OTHER FREQUENCY:DAYS 8-14;?
     Route: 048
  2. ESBRIET [Suspect]
     Active Substance: PIRFENIDONE
     Dosage: ?          OTHER FREQUENCY:DAYS 15 ONWARD;?
     Route: 048
  3. ESBRIET [Suspect]
     Active Substance: PIRFENIDONE
     Indication: IDIOPATHIC PULMONARY FIBROSIS
     Dosage: RX: DAYS 1-7
     Route: 048
     Dates: start: 20190427

REACTIONS (1)
  - Death [None]

NARRATIVE: CASE EVENT DATE: 20190605
